FAERS Safety Report 6832049-3 (Version None)
Quarter: 2010Q3

REPORT INFORMATION
  Report Type: 
  Country: None (occurrence: None)
  Receive Date: 20100712
  Receipt Date: 20100702
  Transmission Date: 20110219
  Serious: Yes (Hospitalization)
  Sender: FDA-Public Use
  Company Number: IT-ASTRAZENECA-2010SE30995

PATIENT
  Age: 31980 Day
  Sex: Male

DRUGS (7)
  1. SEROQUEL [Suspect]
     Route: 048
     Dates: start: 20100513, end: 20100513
  2. TRAZODONE HCL [Suspect]
     Route: 065
     Dates: start: 20100513, end: 20100513
  3. LORMETAZEPAM [Suspect]
     Route: 065
     Dates: start: 20100513, end: 20100513
  4. ESOMEPRAZOLE MAGNESIUM [Concomitant]
     Route: 048
     Dates: start: 20100513, end: 20100513
  5. RIVASTIGMINE [Concomitant]
     Route: 065
     Dates: start: 20100513, end: 20100513
  6. PERINDOPRIL ERBUMINE [Concomitant]
     Route: 065
     Dates: start: 20100513, end: 20100513
  7. ACID ACETYLSALICYLIC ACID [Concomitant]
     Route: 065
     Dates: start: 20100513, end: 20100513

REACTIONS (2)
  - LOSS OF CONSCIOUSNESS [None]
  - SOPOR [None]
